FAERS Safety Report 7628742-5 (Version None)
Quarter: 2011Q3

REPORT INFORMATION
  Report Type: 
  Country: None (occurrence: None)
  Receive Date: 20110721
  Receipt Date: 20110721
  Transmission Date: 20111222
  Serious: No
  Sender: FDA-Public Use
  Company Number: None

PATIENT
  Sex: Female
  Weight: 66.6788 kg

DRUGS (3)
  1. LUMIGAN 0.01% [Suspect]
     Dosage: ONCE PER DAY AT BEDTIME
  2. COMBIGAN [Suspect]
     Indication: GLAUCOMA
     Dosage: TWICE DAILY
  3. AZOPT [Suspect]

REACTIONS (2)
  - LACRIMATION INCREASED [None]
  - OCULAR HYPERAEMIA [None]
